FAERS Safety Report 16404002 (Version 1)
Quarter: 2019Q2

REPORT INFORMATION
  Report Type: Report from Study
  Country: GT (occurrence: GT)
  Receive Date: 20190607
  Receipt Date: 20190607
  Transmission Date: 20190711
  Serious: Yes (Hospitalization)
  Sender: FDA-Public Use
  Company Number: PHHY2018GT079450

PATIENT
  Sex: Female
  Weight: 66.81 kg

DRUGS (4)
  1. SANDOSTATIN LAR DEPOT [Suspect]
     Active Substance: OCTREOTIDE ACETATE
     Indication: ACROMEGALY
     Dosage: 20 MG, UNK
     Route: 030
  2. DOLO NEUROBION [Concomitant]
     Indication: DISCOMFORT
     Route: 048
  3. SANDOSTATIN LAR DEPOT [Suspect]
     Active Substance: OCTREOTIDE ACETATE
     Dosage: UNK
     Route: 030
     Dates: start: 20180731
  4. SANDOSTATIN LAR DEPOT [Suspect]
     Active Substance: OCTREOTIDE ACETATE
     Dosage: UNK
     Route: 030
     Dates: start: 201703

REACTIONS (10)
  - Dermatitis [Unknown]
  - Influenza [Unknown]
  - Oedema peripheral [Unknown]
  - Arthralgia [Unknown]
  - Cough [Unknown]
  - Dry skin [Unknown]
  - Tachycardia [Unknown]
  - Seizure [Unknown]
  - Skin atrophy [Unknown]
  - Rash erythematous [Unknown]
